FAERS Safety Report 11412976 (Version 2)
Quarter: 2015Q3

REPORT INFORMATION
  Report Type: Spontaneous
  Country: US (occurrence: US)
  Receive Date: 20150821
  Receipt Date: 20150903
  Transmission Date: 20151125
  Serious: No
  Sender: FDA-Public Use
  Company Number: US-ELI_LILLY_AND_COMPANY-US201207008323

PATIENT
  Age: 79 Year
  Sex: Female

DRUGS (2)
  1. HUMULIN 70/30 [Suspect]
     Active Substance: INSULIN HUMAN
     Indication: DIABETES MELLITUS
     Dosage: UNK
     Dates: start: 201202
  2. HUMALOG [Suspect]
     Active Substance: INSULIN LISPRO
     Dosage: 100 U, QD
     Dates: start: 201202

REACTIONS (4)
  - Arthritis [Unknown]
  - Underdose [Unknown]
  - Visual impairment [Unknown]
  - Injection site bruising [Unknown]

NARRATIVE: CASE EVENT DATE: 20120723
